FAERS Safety Report 23209876 (Version 3)
Quarter: 2024Q1

REPORT INFORMATION
  Report Type: Spontaneous
  Country: NZ (occurrence: NZ)
  Receive Date: 20231121
  Receipt Date: 20240210
  Transmission Date: 20240410
  Serious: Yes (Other)
  Sender: FDA-Public Use
  Company Number: NZ-CELLTRION INC.-2023NZ021802

PATIENT

DRUGS (6)
  1. INFLIXIMAB [Suspect]
     Active Substance: INFLIXIMAB
     Indication: Ankylosing spondylitis
     Dosage: 350 MG (LOADING DOSING)
     Route: 042
     Dates: start: 20230828, end: 20230828
  2. INFLIXIMAB [Suspect]
     Active Substance: INFLIXIMAB
     Dosage: 2ND INFUSION (SECOND LOADING DOSE)
     Route: 042
     Dates: start: 20230911, end: 20230911
  3. PREDNISONE [Concomitant]
     Active Substance: PREDNISONE
     Dosage: 40 MG, DAILY
  4. PREDNISONE [Concomitant]
     Active Substance: PREDNISONE
     Dosage: 20 MG
  5. QUETIAPINE [Concomitant]
     Active Substance: QUETIAPINE
     Indication: Pain
     Dosage: 25 MG, NOCTE
     Route: 048
     Dates: start: 20230809, end: 20230820
  6. NAPROXEN [Concomitant]
     Active Substance: NAPROXEN
     Indication: Ankylosing spondylitis
     Dosage: 1000 MG, NOCTE
     Route: 048
     Dates: start: 2022

REACTIONS (5)
  - Rash [Unknown]
  - Hypotension [Unknown]
  - Drug hypersensitivity [Unknown]
  - Nervousness [Unknown]
  - Infusion related reaction [Unknown]

NARRATIVE: CASE EVENT DATE: 20230911
